FAERS Safety Report 16803234 (Version 1)
Quarter: 2019Q3

REPORT INFORMATION
  Report Type: Spontaneous
  Country: US (occurrence: US)
  Receive Date: 20190723
  Receipt Date: 20190723
  Transmission Date: 20191005
  Serious: No
  Sender: FDA-Public Use
  Company Number: None

PATIENT
  Age: 54 Year
  Sex: Female

DRUGS (1)
  1. DALFAMPRIDINE 10MG ER TAB [Suspect]
     Active Substance: DALFAMPRIDINE
     Dates: start: 201903

REACTIONS (5)
  - Therapeutic product effect incomplete [None]
  - Muscle twitching [None]
  - Product substitution issue [None]
  - Gait disturbance [None]
  - Disease progression [None]

NARRATIVE: CASE EVENT DATE: 20190723
